FAERS Safety Report 25143797 (Version 2)
Quarter: 2025Q2

REPORT INFORMATION
  Report Type: Other
  Country: GB (occurrence: GB)
  Receive Date: 20250401
  Receipt Date: 20250402
  Transmission Date: 20250717
  Serious: Yes (Other)
  Sender: GLENMARK
  Company Number: None

PATIENT

DRUGS (2)
  1. EZETIMIBE [Suspect]
     Active Substance: EZETIMIBE
     Indication: Blood triglycerides abnormal
     Dosage: 10 MILLIGRAM, QD, (10MG ONCE A DAY)
     Route: 065
     Dates: end: 20250222
  2. Bezalip-mono [Concomitant]
     Indication: Blood cholesterol increased
     Route: 065

REACTIONS (3)
  - Medication error [Unknown]
  - Product dispensing error [Unknown]
  - Headache [Not Recovered/Not Resolved]

NARRATIVE: CASE EVENT DATE: 20250221
